FAERS Safety Report 7814740-5 (Version None)
Quarter: 2011Q4

REPORT INFORMATION
  Report Type: 
  Country: None (occurrence: None)
  Receive Date: 20111014
  Receipt Date: 20111007
  Transmission Date: 20120403
  Serious: Yes (Hospitalization)
  Sender: FDA-Public Use
  Company Number: US-B.I. PHARMACEUTICALS,INC./RIDGEFIELD-2011-BP-10469BP

PATIENT
  Sex: Male

DRUGS (17)
  1. METOPROLOL TARTRATE [Concomitant]
     Dosage: 50 MG
  2. SODIUM CHLORIDE [Concomitant]
  3. AVELOX [Concomitant]
  4. INVANZ [Concomitant]
  5. PROTONIX [Concomitant]
     Route: 042
  6. PRADAXA [Suspect]
     Indication: ATRIAL FIBRILLATION
     Dosage: 300 MG
     Dates: end: 20110408
  7. ZOCOR [Concomitant]
     Dosage: 80 MG
  8. LASIX [Concomitant]
     Indication: CARDIAC FAILURE CONGESTIVE
     Dosage: 40 MG
  9. LISINOPRIL [Concomitant]
     Indication: CARDIAC FAILURE CONGESTIVE
     Dosage: 20 MG
  10. SPIRONOLACTONE [Concomitant]
     Indication: CARDIAC FAILURE CONGESTIVE
     Dosage: 25 MG
  11. INSULIN [Concomitant]
  12. FLAGYL [Concomitant]
  13. PROSCAR [Concomitant]
     Dosage: 5 MG
  14. DOPAMINE HCL [Concomitant]
  15. ASPIRIN [Concomitant]
     Dosage: 81 MG
     Dates: end: 20110408
  16. IMDUR [Concomitant]
     Dosage: 30 MG
  17. ROCEPHIN [Concomitant]

REACTIONS (10)
  - HYPERKALAEMIA [None]
  - CONSTIPATION [None]
  - RENAL FAILURE ACUTE [None]
  - HYPERTENSION [None]
  - ANAEMIA [None]
  - GASTROINTESTINAL HAEMORRHAGE [None]
  - INTERNATIONAL NORMALISED RATIO INCREASED [None]
  - TOXICITY TO VARIOUS AGENTS [None]
  - COAGULOPATHY [None]
  - THROMBOCYTOPENIA [None]
